FAERS Safety Report 9258510 (Version 1)
Quarter: 2013Q2

REPORT INFORMATION
  Report Type: Spontaneous
  Country: US (occurrence: US)
  Receive Date: 20130426
  Receipt Date: 20130426
  Transmission Date: 20140414
  Serious: No
  Sender: FDA-Public Use
  Company Number: US-PFIZER INC-2013127801

PATIENT
  Age: 77 Year
  Sex: Female
  Weight: 72.56 kg

DRUGS (3)
  1. ZYVOX [Suspect]
     Indication: STAPHYLOCOCCAL INFECTION
     Dosage: 600 MG, 2X/DAY
     Route: 048
     Dates: start: 201303, end: 20130409
  2. NIFEDICAL [Concomitant]
     Indication: HYPERTENSION
     Dosage: 50 MG, 1X/DAY
  3. DIGOXIN [Concomitant]
     Dosage: UNK, 1X/DAY

REACTIONS (2)
  - Anaemia [Unknown]
  - Dyspnoea [Unknown]
